FAERS Safety Report 4619273-5 (Version None)
Quarter: 2005Q1

REPORT INFORMATION
  Report Type: 
  Country: None (occurrence: None)
  Receive Date: 20050325
  Receipt Date: 20050201
  Transmission Date: 20050727
  Serious: Yes (Life-Threatening, Hospitalization, Other)
  Sender: FDA-Public Use
  Company Number: US-MERCK-0502USA00204

PATIENT
  Age: 50 Year
  Sex: Male
  Weight: 97 kg

DRUGS (2)
  1. CRIXIVAN [Suspect]
     Indication: HIV INFECTION
     Route: 048
     Dates: start: 19960101, end: 20040101
  2. COMBIVIR [Concomitant]
     Indication: HIV TEST POSITIVE
     Route: 065
     Dates: start: 19960101

REACTIONS (4)
  - ACUTE MYOCARDIAL INFARCTION [None]
  - HIGH DENSITY LIPOPROTEIN DECREASED [None]
  - LIPIDS INCREASED [None]
  - LOW DENSITY LIPOPROTEIN INCREASED [None]
